FAERS Safety Report 19013075 (Version 1)
Quarter: 2021Q1

REPORT INFORMATION
  Report Type: Spontaneous
  Country: US (occurrence: US)
  Receive Date: 20210316
  Receipt Date: 20210316
  Transmission Date: 20210420
  Serious: No
  Sender: FDA-Public Use
  Company Number: None

PATIENT
  Sex: Male

DRUGS (1)
  1. BAMLANIVIMAB. [Suspect]
     Active Substance: BAMLANIVIMAB
     Indication: RESPIRATORY DISORDER
     Route: 042

REACTIONS (2)
  - Product prescribing issue [None]
  - Product use issue [None]

NARRATIVE: CASE EVENT DATE: 20210312
